FAERS Safety Report 19878555 (Version 3)
Quarter: 2021Q4

REPORT INFORMATION
  Report Type: Spontaneous
  Country: CN (occurrence: CN)
  Receive Date: 20210923
  Receipt Date: 20211013
  Transmission Date: 20220303
  Serious: Yes (Life-Threatening, Hospitalization, Other)
  Sender: FDA-Public Use
  Company Number: 2021A733399

PATIENT
  Age: 81 Year
  Sex: Female

DRUGS (2)
  1. TAGRISSO [Suspect]
     Active Substance: OSIMERTINIB
     Indication: Neoplasm
     Dosage: UNKNOWN
     Route: 048
     Dates: start: 20210415
  2. TAGRISSO [Suspect]
     Active Substance: OSIMERTINIB
     Indication: Lung adenocarcinoma
     Dosage: UNKNOWN
     Route: 048
     Dates: start: 20210415

REACTIONS (11)
  - Immunodeficiency [Unknown]
  - Interstitial lung disease [Not Recovered/Not Resolved]
  - Dehydration [Unknown]
  - Abdominal discomfort [Unknown]
  - Vomiting [Unknown]
  - Feeding disorder [Not Recovered/Not Resolved]
  - Condition aggravated [Unknown]
  - Mouth ulceration [Recovered/Resolved]
  - Diarrhoea [Unknown]
  - Product storage error [Unknown]
  - Product quality issue [Unknown]

NARRATIVE: CASE EVENT DATE: 20210612
